FAERS Safety Report 16951786 (Version 11)
Quarter: 2023Q1

REPORT INFORMATION
  Report Type: Report from Study
  Country: US (occurrence: US)
  Receive Date: 20191023
  Receipt Date: 20230214
  Transmission Date: 20230418
  Serious: Yes (Hospitalization, Other)
  Sender: FDA-Public Use
  Company Number: US-SHIRE-US201935440

PATIENT
  Age: 74 Year
  Sex: Female

DRUGS (44)
  1. TEDUGLUTIDE [Suspect]
     Active Substance: TEDUGLUTIDE
     Indication: Short-bowel syndrome
     Dosage: 2.38 MILLIGRAM, QD
     Route: 058
     Dates: start: 20190112
  2. TEDUGLUTIDE [Suspect]
     Active Substance: TEDUGLUTIDE
     Indication: Short-bowel syndrome
     Dosage: 2.38 MILLIGRAM, QD
     Route: 058
     Dates: start: 20190112
  3. TEDUGLUTIDE [Suspect]
     Active Substance: TEDUGLUTIDE
     Indication: Short-bowel syndrome
     Dosage: 2.38 MILLIGRAM, QD
     Route: 058
     Dates: start: 20190112
  4. TEDUGLUTIDE [Suspect]
     Active Substance: TEDUGLUTIDE
     Indication: Short-bowel syndrome
     Dosage: 2.38 MILLIGRAM, QD
     Route: 058
     Dates: start: 20190112
  5. TEDUGLUTIDE [Suspect]
     Active Substance: TEDUGLUTIDE
     Dosage: 2.38 MILLIGRAM, QD
     Route: 058
     Dates: start: 20190613
  6. TEDUGLUTIDE [Suspect]
     Active Substance: TEDUGLUTIDE
     Dosage: 2.38 MILLIGRAM, QD
     Route: 058
     Dates: start: 20190613
  7. TEDUGLUTIDE [Suspect]
     Active Substance: TEDUGLUTIDE
     Dosage: 2.38 MILLIGRAM, QD
     Route: 058
     Dates: start: 20190613
  8. TEDUGLUTIDE [Suspect]
     Active Substance: TEDUGLUTIDE
     Dosage: 2.38 MILLIGRAM, QD
     Route: 058
     Dates: start: 20190613
  9. TEDUGLUTIDE [Suspect]
     Active Substance: TEDUGLUTIDE
     Dosage: UNK
     Route: 058
     Dates: start: 20190617
  10. TEDUGLUTIDE [Suspect]
     Active Substance: TEDUGLUTIDE
     Dosage: UNK
     Route: 058
     Dates: start: 20190617
  11. TEDUGLUTIDE [Suspect]
     Active Substance: TEDUGLUTIDE
     Dosage: UNK
     Route: 058
     Dates: start: 20190617
  12. TEDUGLUTIDE [Suspect]
     Active Substance: TEDUGLUTIDE
     Dosage: UNK
     Route: 058
     Dates: start: 20190617
  13. TEDUGLUTIDE [Suspect]
     Active Substance: TEDUGLUTIDE
     Dosage: 2.38 MILLIGRAM, QD
     Route: 058
     Dates: start: 20190912
  14. TEDUGLUTIDE [Suspect]
     Active Substance: TEDUGLUTIDE
     Dosage: 2.38 MILLIGRAM, QD
     Route: 058
     Dates: start: 20190912
  15. TEDUGLUTIDE [Suspect]
     Active Substance: TEDUGLUTIDE
     Dosage: 2.38 MILLIGRAM, QD
     Route: 058
     Dates: start: 20190912
  16. TEDUGLUTIDE [Suspect]
     Active Substance: TEDUGLUTIDE
     Dosage: 2.38 MILLIGRAM, QD
     Route: 058
     Dates: start: 20190912
  17. TEDUGLUTIDE [Suspect]
     Active Substance: TEDUGLUTIDE
     Dosage: 2.38 MILLIGRAM,QD
     Route: 058
     Dates: start: 20191017
  18. TEDUGLUTIDE [Suspect]
     Active Substance: TEDUGLUTIDE
     Dosage: 2.38 MILLIGRAM,QD
     Route: 058
     Dates: start: 20191017
  19. TEDUGLUTIDE [Suspect]
     Active Substance: TEDUGLUTIDE
     Dosage: 2.38 MILLIGRAM,QD
     Route: 058
     Dates: start: 20191017
  20. TEDUGLUTIDE [Suspect]
     Active Substance: TEDUGLUTIDE
     Dosage: 2.38 MILLIGRAM,QD
     Route: 058
     Dates: start: 20191017
  21. TEDUGLUTIDE [Suspect]
     Active Substance: TEDUGLUTIDE
     Dosage: 2.38 MILLIGRAM, QD
     Route: 058
     Dates: start: 20200320
  22. TEDUGLUTIDE [Suspect]
     Active Substance: TEDUGLUTIDE
     Dosage: 2.38 MILLIGRAM, QD
     Route: 058
     Dates: start: 20200320
  23. TEDUGLUTIDE [Suspect]
     Active Substance: TEDUGLUTIDE
     Dosage: 2.38 MILLIGRAM, QD
     Route: 058
     Dates: start: 20200320
  24. TEDUGLUTIDE [Suspect]
     Active Substance: TEDUGLUTIDE
     Dosage: 2.38 MILLIGRAM, QD
     Route: 058
     Dates: start: 20200320
  25. TEDUGLUTIDE [Suspect]
     Active Substance: TEDUGLUTIDE
     Dosage: 2.38 MILLIGRAM, QD
     Route: 058
     Dates: start: 20200418
  26. TEDUGLUTIDE [Suspect]
     Active Substance: TEDUGLUTIDE
     Dosage: 2.38 MILLIGRAM, QD
     Route: 058
     Dates: start: 20200418
  27. TEDUGLUTIDE [Suspect]
     Active Substance: TEDUGLUTIDE
     Dosage: 2.38 MILLIGRAM, QD
     Route: 058
     Dates: start: 20200418
  28. TEDUGLUTIDE [Suspect]
     Active Substance: TEDUGLUTIDE
     Dosage: 2.38 MILLIGRAM, QD
     Route: 058
     Dates: start: 20200418
  29. TEDUGLUTIDE [Suspect]
     Active Substance: TEDUGLUTIDE
     Dosage: 2.38 MILLIGRAM, QD
     Route: 058
     Dates: start: 20200516
  30. TEDUGLUTIDE [Suspect]
     Active Substance: TEDUGLUTIDE
     Dosage: 2.38 MILLIGRAM, QD
     Route: 058
     Dates: start: 20200516
  31. TEDUGLUTIDE [Suspect]
     Active Substance: TEDUGLUTIDE
     Dosage: 2.38 MILLIGRAM, QD
     Route: 058
     Dates: start: 20200516
  32. TEDUGLUTIDE [Suspect]
     Active Substance: TEDUGLUTIDE
     Dosage: 2.38 MILLIGRAM, QD
     Route: 058
     Dates: start: 20200516
  33. TEDUGLUTIDE [Suspect]
     Active Substance: TEDUGLUTIDE
     Dosage: 2.38 MILLIGRAM, QD
     Route: 058
     Dates: start: 20200617
  34. TEDUGLUTIDE [Suspect]
     Active Substance: TEDUGLUTIDE
     Dosage: 2.38 MILLIGRAM, QD
     Route: 058
     Dates: start: 20200617
  35. TEDUGLUTIDE [Suspect]
     Active Substance: TEDUGLUTIDE
     Dosage: 2.38 MILLIGRAM, QD
     Route: 058
     Dates: start: 20200617
  36. TEDUGLUTIDE [Suspect]
     Active Substance: TEDUGLUTIDE
     Dosage: 2.38 MILLIGRAM, QD
     Route: 058
     Dates: start: 20200617
  37. TEDUGLUTIDE [Suspect]
     Active Substance: TEDUGLUTIDE
     Dosage: 2.38 MILLIGRAM, QD
     Route: 058
     Dates: start: 20200617
  38. TEDUGLUTIDE [Suspect]
     Active Substance: TEDUGLUTIDE
     Dosage: 2.38 MILLIGRAM, QD
     Route: 058
     Dates: start: 20200617
  39. TEDUGLUTIDE [Suspect]
     Active Substance: TEDUGLUTIDE
     Dosage: 2.38 MILLIGRAM, QD
     Route: 058
     Dates: start: 20200617
  40. TEDUGLUTIDE [Suspect]
     Active Substance: TEDUGLUTIDE
     Dosage: 2.38 MILLIGRAM, QD
     Route: 058
     Dates: start: 20200617
  41. TEDUGLUTIDE [Suspect]
     Active Substance: TEDUGLUTIDE
     Dosage: 2.38 MILLIGRAM, QD
     Route: 058
     Dates: start: 20200720
  42. TEDUGLUTIDE [Suspect]
     Active Substance: TEDUGLUTIDE
     Dosage: 2.38 MILLIGRAM, QD
     Route: 058
     Dates: start: 20200720
  43. TEDUGLUTIDE [Suspect]
     Active Substance: TEDUGLUTIDE
     Dosage: 2.38 MILLIGRAM, QD
     Route: 058
     Dates: start: 20200720
  44. TEDUGLUTIDE [Suspect]
     Active Substance: TEDUGLUTIDE
     Dosage: 2.38 MILLIGRAM, QD
     Route: 058
     Dates: start: 20200720

REACTIONS (15)
  - Upper limb fracture [Unknown]
  - Rib fracture [Unknown]
  - Cardio-respiratory arrest [Not Recovered/Not Resolved]
  - COVID-19 [Recovering/Resolving]
  - Constipation [Not Recovered/Not Resolved]
  - Diarrhoea [Recovering/Resolving]
  - Abdominal discomfort [Unknown]
  - Weight decreased [Not Recovered/Not Resolved]
  - Abdominal pain upper [Not Recovered/Not Resolved]
  - Drug level decreased [Recovered/Resolved]
  - Product use issue [Unknown]
  - Product dose omission issue [Unknown]
  - Incorrect dose administered [Unknown]
  - Needle issue [Unknown]
  - Product packaging quantity issue [Unknown]

NARRATIVE: CASE EVENT DATE: 20200401
